FAERS Safety Report 10224869 (Version 1)
Quarter: 2014Q2

REPORT INFORMATION
  Report Type: Spontaneous
  Country: BE (occurrence: BE)
  Receive Date: 20140609
  Receipt Date: 20140609
  Transmission Date: 20141212
  Serious: Yes (Life-Threatening, Hospitalization, Disabling, Other)
  Sender: FDA-Public Use
  Company Number: BE-GLAXOSMITHKLINE-B0997980A

PATIENT
  Age: 57 Year
  Sex: Female
  Weight: 102 kg

DRUGS (7)
  1. LAMBIPOL [Suspect]
     Indication: BIPOLAR II DISORDER
     Route: 065
     Dates: start: 20140404, end: 20140520
  2. L THYROXINE [Concomitant]
     Indication: HYPOTHYROIDISM
     Dosage: 112.5MG PER DAY
     Dates: start: 1971
  3. EFEXOR [Concomitant]
     Indication: THYMUS DISORDER
     Dosage: 75MG PER DAY
     Dates: start: 20130325
  4. PANTOMED (PANTROPRAZOLE) [Concomitant]
     Indication: OESOPHAGITIS
     Dosage: 40MG PER DAY
     Dates: start: 1991
  5. LORAMET [Concomitant]
     Indication: DYSSOMNIA
     Dosage: 2MG PER DAY
     Dates: start: 2013
  6. TRAZOLAN [Concomitant]
     Indication: DYSSOMNIA
     Dosage: 100MG PER DAY
     Dates: start: 2013
  7. CARDIOASPIRIN [Concomitant]
     Indication: PROPHYLAXIS
     Dosage: 1TAB PER DAY

REACTIONS (21)
  - Arthralgia [Not Recovered/Not Resolved]
  - Foreign body sensation in eyes [Unknown]
  - Pruritus [Unknown]
  - Oedema [Recovered/Resolved]
  - Pharyngeal oedema [Unknown]
  - Hyperthermia [Recovered/Resolved]
  - Pain in extremity [Unknown]
  - Peripheral swelling [Unknown]
  - Tachycardia [Recovered/Resolved]
  - Conjunctivitis [Recovered/Resolved]
  - Palpitations [Recovered/Resolved]
  - Dysphagia [Not Recovered/Not Resolved]
  - Ageusia [Not Recovered/Not Resolved]
  - Chills [Unknown]
  - Swollen tongue [Unknown]
  - Bronchospasm [Unknown]
  - Nausea [Unknown]
  - Vomiting [Unknown]
  - Diarrhoea [Unknown]
  - Pyrexia [Unknown]
  - Dysgeusia [Unknown]
